FAERS Safety Report 8761974 (Version 1)
Quarter: 2012Q4

REPORT INFORMATION
  Report Type: Report from Study
  Country: CA (occurrence: CA)
  Receive Date: 20120830
  Receipt Date: 20120830
  Transmission Date: 20130627
  Serious: Yes (Hospitalization)
  Sender: FDA-Public Use
  Company Number: CA-EISAI INC-E7389-02890-CLI-CA

PATIENT
  Sex: Male
  Weight: 86 kg

DRUGS (5)
  1. E7389 BOLD [Suspect]
     Indication: SOLID TUMOR
     Route: 041
     Dates: start: 20110812
  2. GEMCITABINE [Suspect]
     Indication: SOLID TUMOR
     Route: 041
     Dates: start: 20110812
  3. HYDROCHLOROTHIAZIDE [Concomitant]
     Route: 065
  4. LISINOPRIL [Concomitant]
     Route: 065
  5. METFORMIN [Concomitant]
     Route: 065

REACTIONS (2)
  - Pancreas infection [Recovered/Resolved]
  - Lipase increased [Recovered/Resolved]
